FAERS Safety Report 6312624-5 (Version None)
Quarter: 2009Q3

REPORT INFORMATION
  Report Type: 
  Country: None (occurrence: None)
  Receive Date: 20090814
  Receipt Date: 20090803
  Transmission Date: 20100115
  Serious: Yes (Other)
  Sender: FDA-Public Use
  Company Number: US-DEXPHARM-20091164

PATIENT
  Age: 61 Year
  Sex: Male
  Weight: 77.1 kg

DRUGS (2)
  1. OMEPRAZOLE [Suspect]
     Indication: GASTROOESOPHAGEAL REFLUX DISEASE
     Dosage: 20 MG ONCE A DAY, ORAL
     Route: 048
     Dates: start: 20080401, end: 20090630
  2. HIGH BLOOD PRESSURE MEDICATION [Concomitant]

REACTIONS (3)
  - GASTRIC POLYPS [None]
  - INTENTIONAL DRUG MISUSE [None]
  - PRODUCT SUBSTITUTION ISSUE [None]
